FAERS Safety Report 5788306-5 (Version None)
Quarter: 2008Q2

REPORT INFORMATION
  Report Type: 
  Country: None (occurrence: None)
  Receive Date: 20080625
  Receipt Date: 20080613
  Transmission Date: 20081010
  Serious: Yes (Life-Threatening, Hospitalization)
  Sender: FDA-Public Use
  Company Number: GB-PFIZER INC-2008038926

PATIENT
  Sex: Female
  Weight: 56 kg

DRUGS (6)
  1. CHANTIX [Suspect]
     Indication: SMOKING CESSATION THERAPY
     Route: 048
     Dates: start: 20080401, end: 20080404
  2. ASPIRIN [Concomitant]
  3. DIAZEPAM [Concomitant]
  4. AMITRIPTYLINE HCL [Concomitant]
  5. PREMARIN [Concomitant]
  6. CHOLESTEROL [Concomitant]

REACTIONS (6)
  - ANAPHYLACTIC REACTION [None]
  - ANGIOEDEMA [None]
  - DYSPNOEA [None]
  - OEDEMA MOUTH [None]
  - SPEECH DISORDER [None]
  - SWOLLEN TONGUE [None]
